FAERS Safety Report 22104358 (Version 1)
Quarter: 2023Q1

REPORT INFORMATION
  Report Type: Spontaneous
  Country: US (occurrence: US)
  Receive Date: 20230316
  Receipt Date: 20230316
  Transmission Date: 20230417
  Serious: No
  Sender: FDA-Public Use
  Company Number: US-PFIZER INC-PV202300023304

PATIENT
  Age: 59 Year
  Sex: Female
  Weight: 77.098 kg

DRUGS (3)
  1. BRAFTOVI [Suspect]
     Active Substance: ENCORAFENIB
     Dosage: UNK UNK, 3X/DAY
     Dates: start: 20221225, end: 20230128
  2. MEKTOVI [Suspect]
     Active Substance: BINIMETINIB
     Indication: Lymphoma
     Dosage: UNK UNK, 3X/DAY
     Dates: start: 20221225, end: 20230128
  3. PREDNISOLONE ACETATE [Concomitant]
     Active Substance: PREDNISOLONE ACETATE
     Dosage: UNK
     Dates: start: 202212

REACTIONS (11)
  - Off label use [Unknown]
  - Nausea [Unknown]
  - Muscle spasms [Unknown]
  - Vomiting [Unknown]
  - Pyrexia [Unknown]
  - Constipation [Unknown]
  - Blood pressure increased [Unknown]
  - Hypoaesthesia [Unknown]
  - Headache [Unknown]
  - Arthralgia [Unknown]
  - Ocular discomfort [Unknown]

NARRATIVE: CASE EVENT DATE: 20230101
